FAERS Safety Report 4688831-4 (Version None)
Quarter: 2005Q2

REPORT INFORMATION
  Report Type: 
  Country: None (occurrence: None)
  Receive Date: 20050613
  Receipt Date: 20050420
  Transmission Date: 20051028
  Serious: Yes (Other)
  Sender: FDA-Public Use
  Company Number: 200501382

PATIENT
  Age: 75 Year
  Sex: Female

DRUGS (2)
  1. TAGAMET [Suspect]
     Dosage: 400MG UNKNOWN
     Route: 065
     Dates: start: 20050326, end: 20050409
  2. RABEPRAZOLE SODIUM [Concomitant]
     Dates: start: 20050406, end: 20050409

REACTIONS (5)
  - ASPARTATE AMINOTRANSFERASE INCREASED [None]
  - BLOOD CREATINE PHOSPHOKINASE MB INCREASED [None]
  - BLOOD LACTATE DEHYDROGENASE INCREASED [None]
  - DEPRESSED LEVEL OF CONSCIOUSNESS [None]
  - HYPOGLYCAEMIA [None]
